FAERS Safety Report 14356600 (Version 1)
Quarter: 2018Q1

REPORT INFORMATION
  Report Type: Spontaneous
  Country: GB (occurrence: IT)
  Receive Date: 20180105
  Receipt Date: 20180105
  Transmission Date: 20180509
  Serious: Yes (Other)
  Sender: FDA-Public Use
  Company Number: IT-FRESENIUS KABI-FK201800118

PATIENT
  Age: 46 Year
  Sex: Female

DRUGS (2)
  1. OXALIPLATIN 5MG/ML CONCENTRATE FOR SOLUTION FOR INFUSION [Suspect]
     Active Substance: OXALIPLATIN
     Indication: GASTRIC CANCER
     Route: 042
     Dates: start: 20170321, end: 20171019
  2. FLUOROURACIL. [Concomitant]
     Active Substance: FLUOROURACIL
     Indication: PRODUCT USED FOR UNKNOWN INDICATION
     Route: 065
     Dates: start: 20170321, end: 20171019

REACTIONS (2)
  - Urticaria [Recovered/Resolved]
  - Trismus [Recovered/Resolved]

NARRATIVE: CASE EVENT DATE: 20171019
